FAERS Safety Report 5168389-6 (Version None)
Quarter: 2006Q4

REPORT INFORMATION
  Report Type: 
  Country: None (occurrence: None)
  Receive Date: 20061208
  Receipt Date: 20061128
  Transmission Date: 20070319
  Serious: Yes (Other)
  Sender: FDA-Public Use
  Company Number: CA-ROCHE-472894

PATIENT
  Age: 84 Year
  Sex: Male
  Weight: 72 kg

DRUGS (11)
  1. TAMIFLU [Suspect]
     Indication: DRUG USE FOR UNKNOWN INDICATION
     Route: 065
  2. COUMADIN [Concomitant]
  3. ASPIRIN [Concomitant]
  4. CITALOPRAM HYDROBROMIDE [Concomitant]
  5. VITAMIN B-12 [Concomitant]
  6. ASCORBIC ACID [Concomitant]
  7. ISOPTO TEARS [Concomitant]
  8. TYLENOL [Concomitant]
  9. NITROLINGUAL [Concomitant]
     Dosage: FORM: SPRAY.
  10. SLOW-K [Concomitant]
  11. RISPERIDONE [Concomitant]

REACTIONS (4)
  - ECCHYMOSIS [None]
  - HAEMOGLOBIN DECREASED [None]
  - HAEMORRHAGE [None]
  - PROTHROMBIN TIME PROLONGED [None]
